FAERS Safety Report 4744588-X (Version None)
Quarter: 2005Q3

REPORT INFORMATION
  Report Type: 
  Country: None (occurrence: None)
  Receive Date: 20050812
  Receipt Date: 20050721
  Transmission Date: 20060218
  Serious: Yes (Other)
  Sender: FDA-Public Use
  Company Number: 2005-DE-02861GD

PATIENT
  Age: 71 Year
  Sex: Female

DRUGS (3)
  1. CODEINE SUL TAB [Suspect]
     Indication: DIARRHOEA
     Dosage: SEE IMAGE
  2. OLANZAPINE [Suspect]
     Indication: DIARRHOEA
     Dosage: SEE TEXT (, TWICE DAILY, EVERY 4 - 6 HOURS AS NEEDED),
  3. OLANZAPINE [Suspect]
     Indication: NAUSEA
     Dosage: SEE TEXT (, TWICE DAILY, EVERY 4 - 6 HOURS AS NEEDED),

REACTIONS (8)
  - DEHYDRATION [None]
  - DELIRIUM [None]
  - DIARRHOEA [None]
  - DRUG INEFFECTIVE [None]
  - DRUG TOXICITY [None]
  - HALLUCINATION, VISUAL [None]
  - MYOCLONUS [None]
  - NEUROTOXICITY [None]
